FAERS Safety Report 6231798-8 (Version None)
Quarter: 2009Q2

REPORT INFORMATION
  Report Type: 
  Country: None (occurrence: None)
  Receive Date: 20090616
  Receipt Date: 20090612
  Transmission Date: 20091009
  Serious: Yes (Death, Hospitalization, Other)
  Sender: FDA-Public Use
  Company Number: PHHY2008MX30162

PATIENT
  Sex: Female

DRUGS (1)
  1. DIOVAN HCT [Suspect]
     Indication: HYPERTENSION
     Dosage: 1 DF(160/25MG), QD
     Route: 048
     Dates: start: 20070301, end: 20081114

REACTIONS (7)
  - CARDIO-RESPIRATORY ARREST [None]
  - CEREBRAL HAEMORRHAGE [None]
  - COMA [None]
  - HYPERTENSION [None]
  - RENAL DISORDER [None]
  - RENAL FAILURE [None]
  - RESPIRATORY FAILURE [None]
